FAERS Safety Report 21088383 (Version 1)
Quarter: 2022Q3

REPORT INFORMATION
  Report Type: Report from Study
  Country: BR (occurrence: BR)
  Receive Date: 20220715
  Receipt Date: 20220715
  Transmission Date: 20221026
  Serious: Yes (Other)
  Sender: FDA-Public Use
  Company Number: BR-JNJFOC-20220725223

PATIENT
  Sex: Female

DRUGS (1)
  1. REMICADE [Suspect]
     Active Substance: INFLIXIMAB
     Indication: Colitis ulcerative
     Dosage: LAST DOSE OF THE INFLIXIMAB WAS ADMINISTERED ON 09/MAR/2021
     Route: 041

REACTIONS (4)
  - Colitis ulcerative [Not Recovered/Not Resolved]
  - Tuberculin test positive [Not Recovered/Not Resolved]
  - Renal disorder [Unknown]
  - Liver disorder [Unknown]
